FAERS Safety Report 11316196 (Version 1)
Quarter: 2015Q3

REPORT INFORMATION
  Report Type: Spontaneous
  Country: AT (occurrence: AT)
  Receive Date: 20150728
  Receipt Date: 20150728
  Transmission Date: 20151125
  Serious: Yes (Death, Other)
  Sender: FDA-Public Use
  Company Number: AT-WATSON-2015-15419

PATIENT
  Age: 80 Year
  Sex: Female

DRUGS (6)
  1. FLUCONAZOLE (UNKNOWN) [Suspect]
     Active Substance: FLUCONAZOLE
     Dosage: AFTER 1 WEEK
     Route: 065
  2. FLUCONAZOLE (UNKNOWN) [Suspect]
     Active Substance: FLUCONAZOLE
     Dosage: 1200 MG, DAILY
     Route: 065
  3. ACETAZOLAMIDE (WATSON LABORATORIES) [Suspect]
     Active Substance: ACETAZOLAMIDE
     Indication: METABOLIC ALKALOSIS
     Dosage: 250 MG, DAILY
     Route: 065
  4. ACETAZOLAMIDE (WATSON LABORATORIES) [Suspect]
     Active Substance: ACETAZOLAMIDE
     Dosage: 750 MG, DAILY
     Route: 065
  5. FLUCONAZOLE (UNKNOWN) [Suspect]
     Active Substance: FLUCONAZOLE
     Dosage: AFTER 2 DAYS
     Route: 065
  6. FLUCONAZOLE (UNKNOWN) [Suspect]
     Active Substance: FLUCONAZOLE
     Indication: CUSHING^S SYNDROME
     Dosage: 200 MG, DAILY
     Route: 065

REACTIONS (1)
  - Myelodysplastic syndrome [Fatal]
